FAERS Safety Report 9608908 (Version 3)
Quarter: 2014Q1

REPORT INFORMATION
  Report Type: Spontaneous
  Country: US (occurrence: US)
  Receive Date: 20131009
  Receipt Date: 20140314
  Transmission Date: 20141002
  Serious: Yes (Other)
  Sender: FDA-Public Use
  Company Number: US-009507513-1310USA003640

PATIENT
  Age: 68 Year
  Sex: Female
  Weight: 108.84 kg

DRUGS (22)
  1. SYNTHROID [Concomitant]
     Indication: HYPOTHYROIDISM
     Dosage: .125 UNK, UNK
     Route: 048
  2. TRICOR (ADENOSINE) [Concomitant]
     Indication: PROPHYLAXIS
     Dosage: 145 MG, UNK
     Route: 048
  3. TYLENOL WITH CODEINE #3 [Concomitant]
     Indication: PAIN
     Dosage: 300-30, PRN
     Route: 048
  4. VYTORIN [Concomitant]
     Indication: PROPHYLAXIS
     Dosage: 10/20 MG, TIW
     Route: 048
  5. WARFARIN [Concomitant]
     Indication: ANTICOAGULANT THERAPY
     Dosage: 2.5 MG, 3 A WEEK
     Route: 048
  6. LANTUS [Concomitant]
     Indication: PROPHYLAXIS
     Dosage: 60 IU, UNK
     Route: 058
  7. LANTUS [Concomitant]
     Dosage: 100 IU, UNKNOWN
     Route: 058
  8. NOVOLOG MIX 70/30 [Concomitant]
     Indication: PROPHYLAXIS
     Dosage: 5-60 UNK
     Route: 058
  9. NOVOLOG MIX 70/30 [Concomitant]
     Dosage: 100 IU, UNK
     Route: 058
  10. MELATONIN [Concomitant]
     Dosage: 10 MG, UNKNOWN
     Route: 048
  11. CLARITIN-D-12 [Suspect]
     Indication: HYPERSENSITIVITY
     Dosage: 5 MG, BID
     Route: 048
     Dates: start: 20130925
  12. CLARITIN-D-12 [Suspect]
     Dosage: 5 MG, 1-2 QD
     Route: 048
     Dates: start: 201303, end: 201401
  13. BENAZEPRIL HYDROCHLORIDE [Concomitant]
     Indication: PROPHYLAXIS
     Dosage: 10 MG, UNK
     Route: 048
  14. CELEBREX [Concomitant]
     Indication: PAIN
     Dosage: 200 MG, UNK
     Route: 048
  15. FLECAINIDE ACETATE [Concomitant]
     Indication: ATRIAL FIBRILLATION
     Dosage: 150 MG, UNK
     Route: 065
  16. CYANOCOBALAMIN [Concomitant]
     Indication: PRODUCT USED FOR UNKNOWN INDICATION
     Dosage: 1000 MG, UNK
     Route: 048
  17. JANUVIA [Concomitant]
     Indication: PROPHYLAXIS
     Dosage: 100 MG, UNK
     Route: 048
  18. LIDODERM [Concomitant]
     Indication: PAIN
     Dosage: 5% 700 MG
     Route: 062
  19. LOVAZA [Concomitant]
     Indication: PROPHYLAXIS
     Dosage: 1 G, UNK
     Route: 048
  20. VITAMIN D (UNSPECIFIED) [Concomitant]
     Indication: PROPHYLAXIS
     Dosage: 5000 IU, UNK
     Route: 065
  21. METOPROLOL [Concomitant]
     Indication: PROPHYLAXIS
     Dosage: 10 MG, BID
     Route: 065
  22. NEXIUM [Concomitant]
     Indication: PRODUCT USED FOR UNKNOWN INDICATION
     Dosage: 40 MG, UNK
     Route: 048

REACTIONS (12)
  - Blepharoplasty [Recovered/Resolved]
  - Ectropion [Recovered/Resolved]
  - Eyelid oedema [Not Recovered/Not Resolved]
  - Cutis laxa [Recovered/Resolved]
  - Vision blurred [Recovered/Resolved]
  - Eye pruritus [Recovered/Resolved]
  - Lacrimation increased [Recovered/Resolved]
  - Drug hypersensitivity [Recovered/Resolved]
  - Insomnia [Unknown]
  - Drug effect decreased [Unknown]
  - Incorrect drug administration duration [Unknown]
  - Visual impairment [Unknown]
